FAERS Safety Report 16065621 (Version 2)
Quarter: 2019Q1

REPORT INFORMATION
  Report Type: Spontaneous
  Country: EE (occurrence: EE)
  Receive Date: 20190313
  Receipt Date: 20190325
  Transmission Date: 20190418
  Serious: Yes (Hospitalization, Other)
  Sender: FDA-Public Use
  Company Number: EE-VIIV HEALTHCARE LIMITED-EE2019GSK041304

PATIENT
  Age: 53 Year
  Sex: Male
  Weight: 78 kg

DRUGS (3)
  1. TRUVADA [Concomitant]
     Active Substance: EMTRICITABINE\TENOFOVIR DISOPROXIL FUMARATE
     Indication: HIV INFECTION
     Dosage: UNK
  2. TRIUMEQ [Suspect]
     Active Substance: ABACAVIR SULFATE\DOLUTEGRAVIR SODIUM\LAMIVUDINE
     Indication: PRODUCT USED FOR UNKNOWN INDICATION
     Dosage: UNK
     Dates: start: 20190221, end: 20190304
  3. STOCRIN [Concomitant]
     Active Substance: EFAVIRENZ
     Indication: HIV INFECTION
     Dosage: UNK

REACTIONS (21)
  - Renal disorder [Unknown]
  - Vomiting [Recovered/Resolved]
  - Product prescribing error [Unknown]
  - Nausea [Unknown]
  - Stomatitis [Unknown]
  - Myalgia [Unknown]
  - Arthralgia [Unknown]
  - Liver injury [Unknown]
  - Dermatitis exfoliative generalised [Unknown]
  - Thrombocytopenia [Unknown]
  - Asthenia [Recovered/Resolved]
  - Diarrhoea [Recovered/Resolved]
  - Anaemia [Unknown]
  - Wheezing [Unknown]
  - Generalised erythema [Unknown]
  - Tachycardia [Unknown]
  - Dizziness [Unknown]
  - Anaphylactic reaction [Recovered/Resolved]
  - Pyrexia [Recovered/Resolved]
  - Rash [Recovered/Resolved]
  - Decreased appetite [Unknown]

NARRATIVE: CASE EVENT DATE: 20190226
